FAERS Safety Report 10206607 (Version 1)
Quarter: 2014Q2

REPORT INFORMATION
  Report Type: Spontaneous
  Country: US (occurrence: US)
  Receive Date: 20140530
  Receipt Date: 20140530
  Transmission Date: 20141212
  Serious: No
  Sender: FDA-Public Use
  Company Number: US-GLAXOSMITHKLINE-A1061033A

PATIENT
  Age: 58 Year
  Sex: Female

DRUGS (1)
  1. FLOLAN [Suspect]
     Indication: PULMONARY ARTERIAL HYPERTENSION
     Dosage: 55NGKM CONTINUOUS
     Route: 042
     Dates: start: 20000323

REACTIONS (2)
  - Infusion site erythema [Not Recovered/Not Resolved]
  - Scab [Not Recovered/Not Resolved]
